FAERS Safety Report 4662323-0 (Version None)
Quarter: 2005Q2

REPORT INFORMATION
  Report Type: 
  Country: None (occurrence: None)
  Receive Date: 20050512
  Receipt Date: 20050427
  Transmission Date: 20051028
  Serious: Yes (Death, Hospitalization, Other)
  Sender: FDA-Public Use
  Company Number: USA050496118

PATIENT
  Sex: Male

DRUGS (2)
  1. HUMALOG [Suspect]
  2. COUMADIN [Concomitant]

REACTIONS (5)
  - CARDIAC FIBRILLATION [None]
  - CEREBRAL THROMBOSIS [None]
  - COAGULATION TIME SHORTENED [None]
  - DRUG INEFFECTIVE [None]
  - HEMIPLEGIA [None]
